FAERS Safety Report 6257030-7 (Version None)
Quarter: 2009Q3

REPORT INFORMATION
  Report Type: 
  Country: None (occurrence: None)
  Receive Date: 20090706
  Receipt Date: 20090623
  Transmission Date: 20100115
  Serious: Yes (Other)
  Sender: FDA-Public Use
  Company Number: A0792562A

PATIENT
  Age: 69 Year
  Sex: Male

DRUGS (2)
  1. AVANDIA [Suspect]
     Indication: DIABETES MELLITUS
     Dosage: 4MG TWICE PER DAY
     Route: 048
     Dates: start: 20051220, end: 20070601
  2. AVANDAMET [Suspect]
     Indication: DIABETES MELLITUS
     Dates: start: 20040401, end: 20051220

REACTIONS (4)
  - BLINDNESS UNILATERAL [None]
  - CEREBROVASCULAR ACCIDENT [None]
  - HEART INJURY [None]
  - OPTIC ISCHAEMIC NEUROPATHY [None]
